FAERS Safety Report 7737504-X (Version None)
Quarter: 2011Q3

REPORT INFORMATION
  Report Type: 
  Country: None (occurrence: None)
  Receive Date: 20110908
  Receipt Date: 20110831
  Transmission Date: 20111222
  Serious: Yes (Hospitalization)
  Sender: FDA-Public Use
  Company Number: HR-GLAXOSMITHKLINE-B0745050A

PATIENT
  Sex: Male
  Weight: 118 kg

DRUGS (5)
  1. GEMFIBROZIL [Concomitant]
     Dosage: 600MG TWICE PER DAY
  2. GLUCOPHAGE [Concomitant]
     Dosage: 1000MG TWICE PER DAY
  3. AVANDIA [Suspect]
     Indication: TYPE 2 DIABETES MELLITUS
     Dosage: 4MG PER DAY
     Route: 048
     Dates: start: 20050101, end: 20070716
  4. INDAPAMIDE [Concomitant]
     Dosage: 1.5MG PER DAY
  5. BISOPROLOL FUMARATE [Concomitant]
     Dosage: 5MG PER DAY

REACTIONS (4)
  - MYOCARDIAL INFARCTION [None]
  - CEREBROVASCULAR ACCIDENT [None]
  - PERICARDITIS [None]
  - ANGINA PECTORIS [None]
